FAERS Safety Report 14754879 (Version 2)
Quarter: 2018Q2

REPORT INFORMATION
  Report Type: Report from Study
  Country: None (occurrence: DE)
  Receive Date: 20180413
  Receipt Date: 20180417
  Transmission Date: 20180711
  Serious: Yes (Other)
  Sender: FDA-Public Use
  Company Number: DE-ABBVIE-18K-062-2320625-00

PATIENT
  Age: 51 Year
  Sex: Female
  Weight: 94 kg

DRUGS (3)
  1. NOVAMIN [Concomitant]
     Indication: CROHN^S DISEASE
     Route: 048
     Dates: start: 20180102
  2. HUMIRA [Suspect]
     Active Substance: ADALIMUMAB
     Indication: CROHN^S DISEASE
     Route: 058
     Dates: start: 20180116
  3. NOVAMIN [Concomitant]
     Indication: PAIN

REACTIONS (7)
  - Middle ear effusion [Not Recovered/Not Resolved]
  - Deafness [Recovered/Resolved]
  - Infection [Recovered/Resolved]
  - Deafness [Not Recovered/Not Resolved]
  - Nasopharyngitis [Recovering/Resolving]
  - Hypoacusis [Recovering/Resolving]
  - Middle ear effusion [Recovered/Resolved]

NARRATIVE: CASE EVENT DATE: 201801
